FAERS Safety Report 8954148 (Version 3)
Quarter: 2014Q2

REPORT INFORMATION
  Report Type: Report from Study
  Country: BR (occurrence: BR)
  Receive Date: 20121207
  Receipt Date: 20140610
  Transmission Date: 20141212
  Serious: Yes (Life-Threatening, Other)
  Sender: FDA-Public Use
  Company Number: BR-ELI_LILLY_AND_COMPANY-BR201212000694

PATIENT
  Age: 51 Year
  Sex: Female
  Weight: 96 kg

DRUGS (16)
  1. HUMAN INSULIN (RDNA ORIGIN) NPH [Suspect]
     Indication: DIABETES MELLITUS
     Dosage: 40 IU, EACH MORNING
     Route: 058
     Dates: start: 1997
  2. HUMAN INSULIN (RDNA ORIGIN) NPH [Suspect]
     Dosage: 22 IU, OTHER
     Route: 058
     Dates: start: 1997
  3. HUMAN INSULIN (RDNA ORIGIN) NPH [Suspect]
     Dosage: 16 IU, EACH EVENING
     Route: 058
     Dates: start: 1997
  4. HUMAN INSULIN (RDNA ORIGIN) NPH [Suspect]
     Dosage: 10 IU, OTHER
     Route: 058
     Dates: start: 1997
  5. HUMAN INSULIN (RDNA ORIGIN) REGULAR [Suspect]
     Indication: DIABETES MELLITUS
     Dosage: 10 IU, BID
     Route: 058
  6. HUMAN INSULIN (RDNA ORIGIN) REGULAR [Suspect]
     Dosage: 12 IU, OTHER
     Route: 058
  7. HUMAN INSULIN (RDNA ORIGIN) REGULAR [Suspect]
     Dosage: 6 IU, OTHER
     Route: 058
  8. HUMALOG LISPRO [Suspect]
     Indication: DIABETES MELLITUS
     Dosage: 10 IU, TID
     Route: 058
     Dates: start: 201203
  9. HUMALOG LISPRO [Suspect]
     Dosage: 6 IU, OTHER
     Route: 058
     Dates: start: 201203
  10. OSSOPAN                            /03562801/ [Concomitant]
     Dosage: UNK, UNKNOWN
     Route: 065
  11. LASIX [Concomitant]
     Indication: BLOOD PRESSURE ABNORMAL
     Dosage: UNK, UNKNOWN
     Route: 065
  12. AMLODIPIN                          /00972401/ [Concomitant]
     Indication: BLOOD PRESSURE ABNORMAL
     Dosage: UNK, UNKNOWN
     Route: 065
  13. PURAN T4 [Concomitant]
     Dosage: 50 MG, UNKNOWN
     Route: 065
  14. GLIFAGE [Concomitant]
     Dosage: 500 MG, BID
     Route: 065
  15. METAMUCIL [Concomitant]
     Dosage: UNK, UNKNOWN
     Route: 065
  16. LIPLESS [Concomitant]
     Indication: BLOOD TRIGLYCERIDES
     Dosage: UNK, UNKNOWN
     Route: 065

REACTIONS (19)
  - Blood glucose increased [Not Recovered/Not Resolved]
  - Visual impairment [Not Recovered/Not Resolved]
  - Nervousness [Not Recovered/Not Resolved]
  - Injection site pain [Unknown]
  - Injection site mass [Not Recovered/Not Resolved]
  - Venous injury [Not Recovered/Not Resolved]
  - Insomnia [Not Recovered/Not Resolved]
  - Muscle spasms [Not Recovered/Not Resolved]
  - Hepatic steatosis [Not Recovered/Not Resolved]
  - Complication of device removal [Unknown]
  - Drug dose omission [Not Recovered/Not Resolved]
  - Wrong technique in drug usage process [Not Recovered/Not Resolved]
  - Incorrect dose administered [Not Recovered/Not Resolved]
  - Blood cholesterol increased [Recovering/Resolving]
  - Blood triglycerides increased [Not Recovered/Not Resolved]
  - Cardiovascular disorder [Unknown]
  - Exostosis [Not Recovered/Not Resolved]
  - Blood glucose increased [Not Recovered/Not Resolved]
  - Drug ineffective [Unknown]
